FAERS Safety Report 5773063-9 (Version None)
Quarter: 2008Q2

REPORT INFORMATION
  Report Type: 
  Country: None (occurrence: None)
  Receive Date: 20080611
  Receipt Date: 20080602
  Transmission Date: 20081010
  Serious: Yes (Other)
  Sender: FDA-Public Use
  Company Number: GXBR2008US01259

PATIENT
  Age: 66 Year
  Sex: Female
  Weight: 68 kg

DRUGS (6)
  1. METFORMIN HCL [Suspect]
     Indication: DIABETES MELLITUS
     Dosage: 1000 MG, BID, ORAL
     Route: 048
     Dates: start: 20030101, end: 20080301
  2. HUMULIN 70/30 [Concomitant]
  3. HUMULIN 70/30 [Concomitant]
  4. HYDROCHLOROTHIAZIDE [Concomitant]
  5. PROPRANOLOL [Concomitant]
  6. PANTOPRAZOLE SODIUM [Concomitant]

REACTIONS (1)
  - ANAEMIA [None]
